FAERS Safety Report 17850432 (Version 1)
Quarter: 2020Q2

REPORT INFORMATION
  Report Type: Spontaneous
  Country: US (occurrence: US)
  Receive Date: 20200602
  Receipt Date: 20200602
  Transmission Date: 20200714
  Serious: No
  Sender: FDA-Public Use
  Company Number: US-TEVA-2020-US-1242364

PATIENT
  Age: 10 Year
  Sex: Male

DRUGS (2)
  1. PREDNISONE TEVA [Suspect]
     Active Substance: PREDNISONE
     Indication: DERMATITIS CONTACT
     Route: 065
  2. CEFALEXIN TEVA [Suspect]
     Active Substance: CEPHALEXIN
     Route: 065

REACTIONS (3)
  - Rash [Unknown]
  - Dark circles under eyes [Unknown]
  - Adverse drug reaction [Unknown]
